FAERS Safety Report 19188901 (Version 1)
Quarter: 2021Q2

REPORT INFORMATION
  Report Type: Spontaneous
  Country: US (occurrence: US)
  Receive Date: 20210427
  Receipt Date: 20210427
  Transmission Date: 20210717
  Serious: Yes (Other)
  Sender: FDA-Public Use
  Company Number: None

PATIENT
  Age: 67 Year
  Sex: Female
  Weight: 64.86 kg

DRUGS (8)
  1. NAPROXEN. [Concomitant]
     Active Substance: NAPROXEN
  2. ELIQUIS [Concomitant]
     Active Substance: APIXABAN
  3. GABAPENTIN. [Concomitant]
     Active Substance: GABAPENTIN
  4. BISOPROLOL FURMURATE [Concomitant]
  5. SUMATRIPTON [Concomitant]
  6. MYRBETRIQ [Suspect]
     Active Substance: MIRABEGRON
     Indication: HYPERTONIC BLADDER
     Dosage: ?          QUANTITY:1;?
     Route: 048
     Dates: start: 20210315, end: 20210330
  7. BIOTIN [Concomitant]
     Active Substance: BIOTIN
  8. ACYCLVOIR [Concomitant]

REACTIONS (3)
  - Atrial fibrillation [None]
  - Blood pressure decreased [None]
  - Heart rate increased [None]

NARRATIVE: CASE EVENT DATE: 20210330
